FAERS Safety Report 20166801 (Version 1)
Quarter: 2021Q4

REPORT INFORMATION
  Report Type: Spontaneous
  Country: CN (occurrence: CN)
  Receive Date: 20211209
  Receipt Date: 20211209
  Transmission Date: 20220303
  Serious: Yes (Other)
  Sender: FDA-Public Use
  Company Number: CN-PFIZER INC-202101699122

PATIENT
  Age: 11 Year
  Sex: Male

DRUGS (3)
  1. METHOTREXATE [Suspect]
     Active Substance: METHOTREXATE
     Indication: Neoplasm malignant
     Dosage: 16.8 G, 1X/DAY
     Route: 041
     Dates: start: 20210312, end: 20210312
  2. METHOTREXATE [Suspect]
     Active Substance: METHOTREXATE
     Indication: Chemotherapy
  3. SODIUM CHLORIDE [Concomitant]
     Active Substance: SODIUM CHLORIDE
     Indication: Chemotherapy
     Dosage: 600 ML, 1X/DAY
     Route: 041
     Dates: start: 20210312, end: 20210312

REACTIONS (3)
  - Hepatic enzyme increased [Recovering/Resolving]
  - Chest discomfort [Unknown]
  - Drug eruption [Recovered/Resolved]

NARRATIVE: CASE EVENT DATE: 20210312
